FAERS Safety Report 20698886 (Version 1)
Quarter: 2022Q2

REPORT INFORMATION
  Report Type: Spontaneous
  Country: US (occurrence: US)
  Receive Date: 20220412
  Receipt Date: 20220412
  Transmission Date: 20220721
  Serious: Yes (Other)
  Sender: FDA-Public Use
  Company Number: US-AMGEN-USASP2022061208

PATIENT
  Age: 47 Year
  Sex: Female

DRUGS (5)
  1. PEGFILGRASTIM [Suspect]
     Active Substance: PEGFILGRASTIM
     Indication: Prophylaxis
     Dosage: UNK UNK, CYCLICAL
     Route: 065
  2. CARBOPLATIN [Concomitant]
     Active Substance: CARBOPLATIN
     Dosage: UNK UNK, CYCLICAL
  3. PACLITAXEL [Concomitant]
     Active Substance: PACLITAXEL
     Dosage: UNK UNK, CYCLICAL
  4. DEXAMETHASONE [Concomitant]
     Active Substance: DEXAMETHASONE
     Indication: Psoriatic arthropathy
     Dosage: UNK
  5. HEPARIN [Concomitant]
     Active Substance: HEPARIN SODIUM
     Indication: Mesenteric vein thrombosis
     Dosage: UNK UNK, CYCLICAL

REACTIONS (6)
  - Ovarian cancer [Unknown]
  - Clonal haematopoiesis [Unknown]
  - Acquired gene mutation [Unknown]
  - Thrombocytopenia [Recovered/Resolved]
  - Gastrointestinal disorder [Unknown]
  - Infection [Unknown]
